FAERS Safety Report 5020987-6 (Version None)
Quarter: 2006Q2

REPORT INFORMATION
  Report Type: 
  Country: None (occurrence: None)
  Receive Date: 20060606
  Receipt Date: 20060606
  Transmission Date: 20061013
  Serious: Yes (Disabling)
  Sender: FDA-Public Use
  Company Number: None

PATIENT
  Sex: Male
  Weight: 109.3169 kg

DRUGS (2)
  1. SEROQUEL [Suspect]
     Indication: MAJOR DEPRESSION
     Dosage: 600MG  ONCE DAILY  PO
     Route: 048
  2. EFFEXOR XR [Concomitant]

REACTIONS (2)
  - CATARACT [None]
  - LIPIDS ABNORMAL [None]
